FAERS Safety Report 9924430 (Version 1)
Quarter: 2014Q1

REPORT INFORMATION
  Report Type: Spontaneous
  Country: FR (occurrence: FR)
  Receive Date: 20140226
  Receipt Date: 20140226
  Transmission Date: 20141002
  Serious: Yes (Hospitalization, Other)
  Sender: FDA-Public Use
  Company Number: FR-ROXANE LABORATORIES, INC.-2014-RO-00247RO

PATIENT
  Age: 37 Year
  Sex: Female

DRUGS (4)
  1. PREDNISONE [Suspect]
     Indication: HEART TRANSPLANT
     Dosage: 10 MG
     Route: 065
  2. MYCOPHENOLATE MOFETIL [Suspect]
     Indication: HEART TRANSPLANT
     Dosage: 500 MG
     Route: 065
  3. CYCLOSPORINE [Suspect]
     Indication: HEART TRANSPLANT
     Dosage: 300 MG
     Route: 065
  4. TRIMETHOPRIM-SULFAMETHOXAZOLE [Suspect]
     Indication: ANTIFUNGAL PROPHYLAXIS
     Route: 065
     Dates: end: 200803

REACTIONS (4)
  - Brain abscess [Recovered/Resolved]
  - Nocardiosis [Recovered/Resolved]
  - Heart transplant rejection [Unknown]
  - Pneumonia [Unknown]
